FAERS Safety Report 8338859-8 (Version None)
Quarter: 2012Q2

REPORT INFORMATION
  Report Type: 
  Country: None (occurrence: None)
  Receive Date: 20120504
  Receipt Date: 20120117
  Transmission Date: 20120825
  Serious: Yes (Other)
  Sender: FDA-Public Use
  Company Number: CHPA2012US009737

PATIENT
  Sex: Female

DRUGS (1)
  1. EXCEDRIN TENSION HEADACHE CAPLETS [Suspect]
     Indication: PROPHYLAXIS
     Dosage: 2 DF, QD
     Route: 048
     Dates: end: 20120117

REACTIONS (15)
  - HYPERHIDROSIS [None]
  - URINE ABNORMALITY [None]
  - OFF LABEL USE [None]
  - DRUG DEPENDENCE [None]
  - URINARY TRACT DISORDER [None]
  - MALAISE [None]
  - HEART RATE INCREASED [None]
  - ASTHENIA [None]
  - INCORRECT DRUG ADMINISTRATION DURATION [None]
  - DYSURIA [None]
  - BLOOD PRESSURE INCREASED [None]
  - FEELING ABNORMAL [None]
  - FATIGUE [None]
  - DISTURBANCE IN ATTENTION [None]
  - FEAR [None]
